FAERS Safety Report 5578220-2 (Version None)
Quarter: 2007Q4

REPORT INFORMATION
  Report Type: 
  Country: None (occurrence: None)
  Receive Date: 20071231
  Receipt Date: 20071219
  Transmission Date: 20080405
  Serious: Yes (Other)
  Sender: FDA-Public Use
  Company Number: FR-PFIZER INC-2007073726

PATIENT
  Sex: Female
  Weight: 60 kg

DRUGS (5)
  1. CHANTIX [Suspect]
     Indication: SMOKING CESSATION THERAPY
     Dosage: DAILY DOSE:1MG
     Route: 048
  2. PAROXETINE [Interacting]
     Route: 048
     Dates: start: 20070813, end: 20070817
  3. ALPRAZOLAM [Concomitant]
     Indication: ANXIETY
     Route: 048
     Dates: start: 20070813
  4. CARBOSYMAG [Concomitant]
     Route: 048
     Dates: start: 20070823, end: 20070901
  5. METEOXANE [Concomitant]
     Route: 048
     Dates: start: 20070823, end: 20070901

REACTIONS (4)
  - CYCLOTHYMIC DISORDER [None]
  - DEPRESSION [None]
  - DRUG INTERACTION [None]
  - IRRITABILITY [None]
